FAERS Safety Report 8223581-9 (Version None)
Quarter: 2012Q1

REPORT INFORMATION
  Report Type: 
  Country: None (occurrence: None)
  Receive Date: 20120321
  Receipt Date: 20120315
  Transmission Date: 20120608
  Serious: No
  Sender: FDA-Public Use
  Company Number: US-PFIZER INC-2012069365

PATIENT
  Sex: Female
  Weight: 72.562 kg

DRUGS (12)
  1. LEVOTHYROXINE [Concomitant]
     Indication: MENTAL DISORDER
     Dosage: 75 MG,DAILY
  2. MELOXICAM [Concomitant]
     Indication: ARTHRITIS
     Dosage: 7.5 MG, 2X/DAY
  3. METHOCARBAMOL [Concomitant]
     Indication: ARTHRITIS
     Dosage: 500 MG, 3X/DAY
  4. HYDROCODONE [Concomitant]
     Indication: FIBROMYALGIA
  5. CYMBALTA [Concomitant]
     Indication: MENTAL DISORDER
     Dosage: 90 MG,DAILY
  6. MELOXICAM [Concomitant]
     Indication: FIBROMYALGIA
  7. NICOTROL [Suspect]
     Dosage: UNK
     Dates: start: 20120312
  8. HYDROCODONE [Concomitant]
     Indication: ARTHRITIS
     Dosage: 7.5 MG, 2X/DAY
  9. NICOTROL [Suspect]
     Indication: SMOKING CESSATION THERAPY
     Dosage: UNK
  10. METHOCARBAMOL [Concomitant]
     Indication: FIBROMYALGIA
  11. NICODERM [Concomitant]
     Indication: SMOKING CESSATION THERAPY
     Dosage: 21 MG,DAILY
     Dates: start: 20120201
  12. SEROQUEL [Concomitant]
     Indication: MENTAL DISORDER
     Dosage: 300 MG,DAILY

REACTIONS (2)
  - DYSGEUSIA [None]
  - THROAT IRRITATION [None]
